FAERS Safety Report 23249742 (Version 7)
Quarter: 2025Q3

REPORT INFORMATION
  Report Type: Report from Study
  Country: US (occurrence: US)
  Receive Date: 20231201
  Receipt Date: 20250731
  Transmission Date: 20251020
  Serious: Yes (Other)
  Sender: ABBVIE
  Company Number: US-ABBVIE-5520078

PATIENT
  Age: 73 Year
  Sex: Male

DRUGS (2)
  1. HUMIRA [Suspect]
     Active Substance: ADALIMUMAB
     Indication: Ankylosing spondylitis
     Route: 058
     Dates: start: 20230524
  2. HUMIRA [Suspect]
     Active Substance: ADALIMUMAB
     Route: 058
     Dates: start: 20230523

REACTIONS (14)
  - Spinal fusion acquired [Unknown]
  - Cervical radiculopathy [Unknown]
  - Balance disorder [Unknown]
  - Musculoskeletal discomfort [Unknown]
  - Medical device site joint pain [Not Recovered/Not Resolved]
  - Osteoarthritis [Unknown]
  - Head discomfort [Unknown]
  - Spinal pain [Not Recovered/Not Resolved]
  - Spinal osteoarthritis [Unknown]
  - Nephropathy [Unknown]
  - Atrial fibrillation [Unknown]
  - Device material issue [Unknown]
  - Intervertebral disc protrusion [Unknown]
  - Inflammation [Unknown]

NARRATIVE: CASE EVENT DATE: 20230731
